FAERS Safety Report 23853048 (Version 1)
Quarter: 2024Q2

REPORT INFORMATION
  Report Type: Spontaneous
  Country: PL (occurrence: PL)
  Receive Date: 20240514
  Receipt Date: 20240514
  Transmission Date: 20240716
  Serious: Yes (Other)
  Sender: FDA-Public Use
  Company Number: None

PATIENT
  Age: 54 Year
  Sex: Male
  Weight: 104 kg

DRUGS (6)
  1. VENLAFAXINE HYDROCHLORIDE [Suspect]
     Active Substance: VENLAFAXINE HYDROCHLORIDE
     Indication: Social anxiety disorder
     Dosage: 1 DOSAGE FORM,QD IN THE MORNING; THERAPY ONGOING; THE PATIENT WAS PRESCRIBED A DOSE OF 75 MG
     Route: 048
     Dates: start: 20191005
  2. BISOPROLOL [Concomitant]
     Active Substance: BISOPROLOL\BISOPROLOL FUMARATE
     Dosage: 1 DOSAGE FORM, QD DRUG HAS BEEN USED FOR A LONG TIME, IN THE MORNING; THE PATIENT DISCONTINUED THE
     Route: 048
     Dates: end: 20191007
  3. RAMIPRIL [Concomitant]
     Active Substance: RAMIPRIL
     Dosage: 1 DOSAGE FORM, QD IN THE EVENING
     Route: 048
  4. ASPIRIN [Concomitant]
     Active Substance: ASPIRIN
     Dosage: 1 DOSAGE FORM, QD THE DRUG HAS BEEN USED FOR SEVERAL YEARS; THERAPY ONGOING
     Route: 048
  5. MAGVIT B6 [Concomitant]
     Indication: Muscle spasms
     Dosage: 1 DF, BID DRUG USED FOR A MONTH, ONE TABLET IN THE MORNING AND IN THE EVENING; THERAPY ONGOING
     Route: 048
  6. SYLIMAROL [Concomitant]
     Dosage: DRUG HAS BEEN USED FOR A LONG TIME
     Route: 048

REACTIONS (3)
  - Heart rate decreased [Not Recovered/Not Resolved]
  - Blood pressure abnormal [Not Recovered/Not Resolved]
  - Headache [Not Recovered/Not Resolved]

NARRATIVE: CASE EVENT DATE: 20191006
